FAERS Safety Report 25282072 (Version 1)
Quarter: 2025Q2

REPORT INFORMATION
  Report Type: Spontaneous
  Country: HR (occurrence: HR)
  Receive Date: 20250508
  Receipt Date: 20250508
  Transmission Date: 20250716
  Serious: Yes (Other)
  Sender: CHEPLAPHARM
  Company Number: None

PATIENT
  Age: 17 Year
  Sex: Female

DRUGS (6)
  1. QUETIAPINE [Suspect]
     Active Substance: QUETIAPINE
     Indication: Suicide attempt
     Dosage: 10 QUETIAPINE 25 MG TABLETS?DAILY DOSE: 250 MILLIGRAM
     Route: 048
     Dates: start: 20250314, end: 20250314
  2. QUETIAPINE [Suspect]
     Active Substance: QUETIAPINE
     Indication: Suicide attempt
     Dosage: 2 QUETIAPINE 15 MG TABLETS?DAILY DOSE: 30 MILLIGRAM
     Route: 048
     Dates: start: 20250314, end: 20250314
  3. ALPRAZOLAM [Suspect]
     Active Substance: ALPRAZOLAM
     Indication: Suicide attempt
     Dosage: 39 MISAR 1 MG TABLETS?DAILY DOSE: 39 MILLIGRAM
     Route: 048
     Dates: start: 20250314, end: 20250314
  4. ALPRAZOLAM [Suspect]
     Active Substance: ALPRAZOLAM
     Indication: Suicide attempt
     Dosage: 10 MISAR 0.5 MG TABLETS?DAILY DOSE: 5 MILLIGRAM
     Route: 048
     Dates: start: 20250314, end: 20250314
  5. FLURAZEPAM HYDROCHLORIDE [Suspect]
     Active Substance: FLURAZEPAM HYDROCHLORIDE
     Indication: Suicide attempt
     Dosage: DAILY DOSE: 30 MILLIGRAM
     Route: 048
     Dates: start: 20250314, end: 20250314
  6. CANNABIS SATIVA SUBSP. INDICA TOP [Suspect]
     Active Substance: CANNABIS SATIVA SUBSP. INDICA TOP
     Indication: Suicide attempt

REACTIONS (4)
  - Suicide attempt [Unknown]
  - Intentional overdose [Unknown]
  - Vertigo [Unknown]
  - Malaise [Unknown]

NARRATIVE: CASE EVENT DATE: 20250314
